FAERS Safety Report 18916414 (Version 2)
Quarter: 2021Q1

REPORT INFORMATION
  Report Type: Report from Study
  Country: FR (occurrence: FR)
  Receive Date: 20210219
  Receipt Date: 20210319
  Transmission Date: 20210420
  Serious: Yes (Hospitalization)
  Sender: FDA-Public Use
  Company Number: FR-INSMED INCORPORATED-2021-07846-FR

PATIENT

DRUGS (5)
  1. LASILIX [FUROSEMIDE] [Suspect]
     Active Substance: FUROSEMIDE
     Indication: PRODUCT USED FOR UNKNOWN INDICATION
  2. CEFOXITIN [Suspect]
     Active Substance: CEFOXITIN SODIUM
     Indication: PRODUCT USED FOR UNKNOWN INDICATION
  3. LIPOSOMAL AMIKACIN [Suspect]
     Active Substance: AMIKACIN SULFATE
     Indication: MYCOBACTERIUM AVIUM COMPLEX INFECTION
     Dosage: 590 MILLIGRAM, QD
     Route: 055
     Dates: start: 20201128, end: 2021
  4. TEDIZOLID [Suspect]
     Active Substance: TEDIZOLID
     Indication: PRODUCT USED FOR UNKNOWN INDICATION
  5. CLARITHROMYCINE [Suspect]
     Active Substance: CLARITHROMYCIN
     Indication: PRODUCT USED FOR UNKNOWN INDICATION

REACTIONS (1)
  - Renal failure [Unknown]

NARRATIVE: CASE EVENT DATE: 20210206
